FAERS Safety Report 12427532 (Version 5)
Quarter: 2017Q4

REPORT INFORMATION
  Report Type: Report from Study
  Country: None (occurrence: US)
  Receive Date: 20160602
  Receipt Date: 20171020
  Transmission Date: 20180320
  Serious: Yes (Hospitalization, Other)
  Sender: FDA-Public Use
  Company Number: US-ABBVIE-16K-163-1636964-00

PATIENT
  Age: 64 Year
  Sex: Male
  Weight: 95.3 kg

DRUGS (21)
  1. LISINOPRIL. [Concomitant]
     Active Substance: LISINOPRIL
     Indication: HYPERTENSION
     Route: 048
     Dates: start: 20150331
  2. FENTYL PATCH [Concomitant]
     Indication: PAIN
     Dosage: 50 MCG/HR TD
  3. NORCO [Concomitant]
     Active Substance: ACETAMINOPHEN\HYDROCODONE BITARTRATE
     Indication: ANKYLOSING SPONDYLITIS
     Dosage: 10/325MG
     Route: 048
     Dates: start: 20150821
  4. PLAVIX [Concomitant]
     Active Substance: CLOPIDOGREL BISULFATE
     Indication: ANTICOAGULANT THERAPY
     Route: 048
     Dates: start: 20141010
  5. LASIX [Concomitant]
     Active Substance: FUROSEMIDE
     Indication: HYPERTENSION
     Route: 048
     Dates: start: 20140912
  6. DURAGESIC [Concomitant]
     Active Substance: FENTANYL
     Indication: PAIN
     Dosage: PATCH 72
     Route: 062
     Dates: start: 20151211, end: 20160224
  7. CELEBREX [Concomitant]
     Active Substance: CELECOXIB
     Indication: MUSCULOSKELETAL DISORDER
  8. VOLTAREN [Concomitant]
     Active Substance: DICLOFENAC SODIUM
     Indication: JOINT INJURY
     Dosage: TABLET ENTERIC COATED
     Route: 048
     Dates: start: 20140214, end: 20140430
  9. SUPER B COMPLEX [Concomitant]
     Active Substance: CYANOCOBALAMIN\DEXPANTHENOL\NIACINAMIDE\PYRIDOXINE HYDROCHLORIDE\RIBOFLAVIN 5^-PHOSPHATE SODIUM\THIAMINE HYDROCHLORIDE\VITAMIN B COMPLEX
     Indication: PRODUCT USED FOR UNKNOWN INDICATION
     Route: 048
  10. CELEBREX [Concomitant]
     Active Substance: CELECOXIB
     Indication: ARTHRALGIA
  11. VOLTAREN [Concomitant]
     Active Substance: DICLOFENAC SODIUM
     Indication: ARTHRALGIA
  12. LIPITOR [Concomitant]
     Active Substance: ATORVASTATIN CALCIUM
     Indication: BLOOD CHOLESTEROL INCREASED
     Dosage: EVERY NIGHT AT BEDTIME
     Route: 048
     Dates: start: 20141015
  13. CENTRUM [Concomitant]
     Active Substance: VITAMINS
     Indication: PRODUCT USED FOR UNKNOWN INDICATION
     Route: 048
  14. CELEBREX [Concomitant]
     Active Substance: CELECOXIB
     Indication: JOINT INJURY
     Route: 048
     Dates: start: 20140711, end: 20150327
  15. BACTROBAN [Concomitant]
     Active Substance: MUPIROCIN\MUPIROCIN CALCIUM
     Indication: PRODUCT USED FOR UNKNOWN INDICATION
     Dosage: BEGIN 5 DAYS PRIOR TO SURGERY
     Dates: start: 20140711, end: 20140929
  16. AMBIEN CR [Concomitant]
     Active Substance: ZOLPIDEM TARTRATE
     Indication: PRODUCT USED FOR UNKNOWN INDICATION
  17. HUMIRA [Suspect]
     Active Substance: ADALIMUMAB
     Indication: ANKYLOSING SPONDYLITIS
     Route: 058
     Dates: start: 201505, end: 201507
  18. CARVEDILOL. [Concomitant]
     Active Substance: CARVEDILOL
     Indication: HYPERTENSION
     Route: 048
     Dates: start: 20141010
  19. HUMIRA [Suspect]
     Active Substance: ADALIMUMAB
     Indication: RHEUMATOID ARTHRITIS
     Route: 058
     Dates: start: 201602
  20. ASPIRIN ENTERIC-COATED [Concomitant]
     Indication: ANTICOAGULANT THERAPY
     Dosage: TABLET ENTERIC COATED
     Route: 048
     Dates: start: 20141010
  21. VOLTAREN [Concomitant]
     Active Substance: DICLOFENAC SODIUM
     Indication: MUSCULOSKELETAL DISORDER

REACTIONS (18)
  - Cough [Recovered/Resolved]
  - Peripheral vascular disorder [Unknown]
  - Complication associated with device [Unknown]
  - Surgical failure [Unknown]
  - Musculoskeletal pain [Unknown]
  - Red blood cell sedimentation rate increased [Unknown]
  - Device material issue [Unknown]
  - Complication associated with device [Unknown]
  - Respiratory tract congestion [Recovered/Resolved]
  - Spinal flattening [Unknown]
  - Device dislocation [Unknown]
  - Device dislocation [Recovered/Resolved]
  - Joint abscess [Unknown]
  - Device dislocation [Recovered/Resolved]
  - Hip arthroplasty [Unknown]
  - Periprosthetic osteolysis [Unknown]
  - Lower respiratory tract infection [Recovered/Resolved]
  - Periprosthetic osteolysis [Unknown]

NARRATIVE: CASE EVENT DATE: 2015
